FAERS Safety Report 22250363 (Version 2)
Quarter: 2023Q2

REPORT INFORMATION
  Report Type: Spontaneous
  Country: US (occurrence: US)
  Receive Date: 20230425
  Receipt Date: 20230426
  Transmission Date: 20230721
  Serious: Yes (Death, Life-Threatening, Other)
  Sender: FDA-Public Use
  Company Number: US-PFIZER INC-PV202300072649

PATIENT
  Age: 58 Year
  Sex: Male

DRUGS (3)
  1. SIROLIMUS [Interacting]
     Active Substance: SIROLIMUS
     Indication: Heart transplant
     Dosage: 0.5 MG, DAILY
  2. SIROLIMUS [Interacting]
     Active Substance: SIROLIMUS
     Dosage: 0.5 MG, ALTERNATE DAY
  3. SIROLIMUS [Interacting]
     Active Substance: SIROLIMUS
     Dosage: 0.25 MG, ALTERNATE DAY

REACTIONS (2)
  - Drug-disease interaction [Fatal]
  - Drug level increased [Unknown]
